FAERS Safety Report 10456887 (Version 1)
Quarter: 2014Q3

REPORT INFORMATION
  Report Type: Spontaneous
  Country: SE (occurrence: SE)
  Receive Date: 20140916
  Receipt Date: 20140916
  Transmission Date: 20150326
  Serious: Yes (Hospitalization)
  Sender: FDA-Public Use
  Company Number: SE-SA-2014SA125427

PATIENT
  Age: 81 Year
  Sex: Male

DRUGS (4)
  1. AMANTADINE [Suspect]
     Active Substance: AMANTADINE
     Dosage: DOSE INCREASED
     Route: 065
  2. NORTRIPTYLINE [Suspect]
     Active Substance: NORTRIPTYLINE
     Route: 065
  3. FUROSEMIDE. [Suspect]
     Active Substance: FUROSEMIDE
     Route: 065
  4. AMANTADINE [Suspect]
     Active Substance: AMANTADINE
     Route: 065

REACTIONS (2)
  - Confusional state [Unknown]
  - Orthostatic hypotension [Unknown]
